FAERS Safety Report 7504372-0 (Version None)
Quarter: 2011Q2

REPORT INFORMATION
  Report Type: 
  Country: None (occurrence: None)
  Receive Date: 20110525
  Receipt Date: 20110523
  Transmission Date: 20111010
  Serious: Yes (Hospitalization, Other)
  Sender: FDA-Public Use
  Company Number: US-PFIZER INC-2011110801

PATIENT
  Sex: Female
  Weight: 43.991 kg

DRUGS (4)
  1. ACETAMINOPHEN [Concomitant]
     Dosage: UNK
  2. ADVIL LIQUI-GELS [Concomitant]
     Dosage: UNK
  3. SOLU-MEDROL [Suspect]
     Dosage: 500 MG, WEEKLY
     Route: 042
     Dates: start: 20091001, end: 20110301
  4. SOLU-MEDROL [Suspect]
     Dosage: 500 MG, EVERY OTHER WEEK
     Dates: start: 20110301, end: 20110501

REACTIONS (3)
  - DYSPNOEA [None]
  - PAINFUL RESPIRATION [None]
  - HYPOAESTHESIA [None]
